FAERS Safety Report 15634800 (Version 1)
Quarter: 2018Q4

REPORT INFORMATION
  Report Type: Report from Study
  Country: GB (occurrence: GB)
  Receive Date: 20181119
  Receipt Date: 20181119
  Transmission Date: 20190205
  Serious: Yes (Death, Hospitalization, Other)
  Sender: FDA-Public Use
  Company Number: GB-ROCHE-2212838

PATIENT
  Age: 82 Year
  Sex: Female
  Weight: 91 kg

DRUGS (2)
  1. SULPHASALAZINE [Concomitant]
     Active Substance: SULFASALAZINE
     Indication: RHEUMATOID ARTHRITIS
  2. TOCILIZUMAB. [Suspect]
     Active Substance: TOCILIZUMAB
     Indication: RHEUMATOID ARTHRITIS
     Route: 065
     Dates: start: 20130318, end: 20180904

REACTIONS (4)
  - Lung cancer metastatic [Fatal]
  - Pleuritic pain [Fatal]
  - Cough [Fatal]
  - Cancer pain [Unknown]

NARRATIVE: CASE EVENT DATE: 20180907
